FAERS Safety Report 9536075 (Version 1)
Quarter: 2013Q2

REPORT INFORMATION
  Report Type: Spontaneous
  Country: US (occurrence: None)
  Receive Date: 20130507
  Receipt Date: 20130507
  Transmission Date: 20140414
  Serious: No
  Sender: FDA-Public Use
  Company Number: PHEH2012US024108

PATIENT
  Age: 60 Year
  Sex: Female
  Weight: 68 kg

DRUGS (2)
  1. AFINITOR [Suspect]
     Indication: BREAST CANCER
     Dosage: 10 MG, QD, ORAL
     Route: 048
  2. CALCIUM (CALCIUM) TABLET [Concomitant]

REACTIONS (3)
  - Rash [None]
  - Pruritus [None]
  - Drug ineffective [None]
